FAERS Safety Report 9788334 (Version 2)
Quarter: 2014Q1

REPORT INFORMATION
  Report Type: Report from Study
  Country: US (occurrence: US)
  Receive Date: 20131230
  Receipt Date: 20140325
  Transmission Date: 20141002
  Serious: Yes (Other)
  Sender: FDA-Public Use
  Company Number: US-PURDUE-USA-2013-0109850

PATIENT
  Age: 54 Year
  Sex: Female

DRUGS (3)
  1. OXY CR TAB [Suspect]
     Indication: PRODUCT USED FOR UNKNOWN INDICATION
     Dosage: UNK
     Route: 048
     Dates: start: 2009
  2. OXY CR TAB [Suspect]
     Dosage: 40 MG, 1 TABLET AT 9 A.M AND 2 TABLETS AT 9 P.M
     Route: 048
     Dates: start: 20131206
  3. OXY CR TAB [Suspect]
     Dosage: 160 MG, BID
     Route: 048
     Dates: start: 20131206

REACTIONS (4)
  - Lung disorder [Unknown]
  - Intervertebral disc protrusion [Unknown]
  - Cerebrospinal fluid leakage [Unknown]
  - Bronchitis [Not Recovered/Not Resolved]
